FAERS Safety Report 6040956-7 (Version None)
Quarter: 2009Q1

REPORT INFORMATION
  Report Type: 
  Country: None (occurrence: None)
  Receive Date: 20090116
  Receipt Date: 20080710
  Transmission Date: 20090719
  Serious: No
  Sender: FDA-Public Use
  Company Number: US-BRISTOL-MYERS SQUIBB COMPANY-14256978

PATIENT
  Age: 27 Year
  Sex: Female
  Weight: 88 kg

DRUGS (3)
  1. ABILIFY [Suspect]
     Indication: ANXIETY
     Dosage: TWO MONTHS AGO ABILIFY 5MG,BID ,TOTAL 3 WKS. ALSO ABILIFY, QD ON 09-JUL-2008
  2. FIORICET [Concomitant]
  3. KLONOPIN [Concomitant]

REACTIONS (2)
  - NAUSEA [None]
  - VOMITING [None]
